FAERS Safety Report 6072416-1 (Version None)
Quarter: 2009Q1

REPORT INFORMATION
  Report Type: 
  Country: None (occurrence: None)
  Receive Date: 20090209
  Receipt Date: 20090209
  Transmission Date: 20090719
  Serious: Yes (Hospitalization, Other)
  Sender: FDA-Public Use
  Company Number: None

PATIENT
  Age: 23 Year
  Sex: Female
  Weight: 56.6996 kg

DRUGS (2)
  1. LAMICTAL [Suspect]
     Dosage: 200 1 AM 2 PM PO
     Route: 048
     Dates: start: 20081115, end: 20081125
  2. TRICYCLENE LO GENERIC ? [Suspect]
     Dosage: 1 PER DAY PO
     Route: 048
     Dates: start: 20071025, end: 20081025

REACTIONS (3)
  - CONDITION AGGRAVATED [None]
  - CONVULSION [None]
  - THERAPEUTIC RESPONSE UNEXPECTED WITH DRUG SUBSTITUTION [None]
